FAERS Safety Report 10069999 (Version 1)
Quarter: 2014Q2

REPORT INFORMATION
  Report Type: Spontaneous
  Country: US (occurrence: None)
  Receive Date: 20140409
  Receipt Date: 20140409
  Transmission Date: 20141212
  Serious: Yes (Death, Life-Threatening)
  Sender: FDA-Public Use
  Company Number: None

PATIENT
  Age: 42 Year
  Sex: Male
  Weight: 162.6 kg

DRUGS (2)
  1. ZANAMIVIR [Suspect]
     Dosage: 13 MAR 14  1600  -  600MG IV LOAD
     Route: 042
     Dates: start: 20140313
  2. ZANTAC [Concomitant]

REACTIONS (2)
  - Respiratory failure [None]
  - Condition aggravated [None]
